FAERS Safety Report 23146342 (Version 1)
Quarter: 2023Q4

REPORT INFORMATION
  Report Type: Spontaneous
  Country: US (occurrence: US)
  Receive Date: 20231104
  Receipt Date: 20231104
  Transmission Date: 20240109
  Serious: Yes (Hospitalization, Other)
  Sender: FDA-Public Use
  Company Number: US-EPICPHARMA-US-2023EPCLIT01680

PATIENT
  Sex: Female

DRUGS (7)
  1. AMIODARONE HYDROCHLORIDE [Suspect]
     Active Substance: AMIODARONE HYDROCHLORIDE
     Indication: Atrial tachycardia
     Dosage: 5 MG/KG BOLUS AND 15 MG/KG/DAY
     Route: 065
  2. AMIODARONE HYDROCHLORIDE [Suspect]
     Active Substance: AMIODARONE HYDROCHLORIDE
     Dosage: 15 MG/KG/MIN
     Route: 065
  3. AMIODARONE HYDROCHLORIDE [Suspect]
     Active Substance: AMIODARONE HYDROCHLORIDE
     Route: 065
  4. IVABRADINE [Suspect]
     Active Substance: IVABRADINE
     Indication: Atrial tachycardia
     Dosage: 0.05 MG/KG/DOSE
     Route: 065
  5. ADENOSINE [Concomitant]
     Active Substance: ADENOSINE
     Indication: Atrial tachycardia
     Route: 065
  6. ESMOLOL [Concomitant]
     Active Substance: ESMOLOL HYDROCHLORIDE
     Indication: Tachycardia
     Route: 065
  7. PROCAINAMIDE HYDROCHLORIDE [Concomitant]
     Active Substance: PROCAINAMIDE HYDROCHLORIDE
     Indication: Atrial tachycardia
     Dosage: 50 ?G/KG/MIN
     Route: 065

REACTIONS (2)
  - Bradycardia [Recovered/Resolved]
  - Drug ineffective for unapproved indication [Unknown]
